FAERS Safety Report 7793418-0 (Version None)
Quarter: 2011Q4

REPORT INFORMATION
  Report Type: 
  Country: None (occurrence: None)
  Receive Date: 20111003
  Receipt Date: 20110928
  Transmission Date: 20120403
  Serious: Yes (Other)
  Sender: FDA-Public Use
  Company Number: US-PURDUE-USA-2010-0050267

PATIENT
  Sex: Female
  Weight: 83.9 kg

DRUGS (6)
  1. TOPROL-XL [Concomitant]
     Indication: HYPERTENSION
     Dosage: 25 MG, DAILY
     Route: 048
  2. OXYCONTIN [Suspect]
     Indication: BACK PAIN
     Dosage: 80 MG, BID
     Dates: start: 20100924
  3. ACYCLOVIR [Concomitant]
     Indication: HERPES VIRUS INFECTION
     Dosage: 450 MG, TID
  4. OXYCODONE HCL [Concomitant]
     Indication: BREAKTHROUGH PAIN
     Dosage: 15 MG, TID PRN
  5. HYDROCHLOROTHIAZID [Concomitant]
     Indication: HYPERTENSION
     Dosage: 25 MG, DAILY
     Route: 048
  6. OXYCONTIN [Suspect]
     Dosage: 90 MG, BID
     Route: 048
     Dates: start: 20110401

REACTIONS (8)
  - MEDICATION RESIDUE [None]
  - INADEQUATE ANALGESIA [None]
  - MALABSORPTION [None]
  - PAIN [None]
  - THERAPEUTIC RESPONSE DELAYED [None]
  - INTESTINAL OBSTRUCTION [None]
  - GASTROINTESTINAL NECROSIS [None]
  - COLON CANCER [None]
